FAERS Safety Report 7209557-9 (Version None)
Quarter: 2011Q1

REPORT INFORMATION
  Report Type: 
  Country: None (occurrence: None)
  Receive Date: 20110104
  Receipt Date: 20101227
  Transmission Date: 20110831
  Serious: Yes (Death, Hospitalization, Other)
  Sender: FDA-Public Use
  Company Number: CL-GENZYME-CLOF-1001359

PATIENT
  Sex: Male
  Weight: 72.6 kg

DRUGS (14)
  1. CYCLOPHOSPHAMIDE [Suspect]
     Indication: ACUTE LYMPHOCYTIC LEUKAEMIA
     Dosage: 560 MG, QDX5
     Route: 042
     Dates: start: 20101115, end: 20101119
  2. ELSPAR [Suspect]
     Indication: ACUTE LYMPHOCYTIC LEUKAEMIA
     Dosage: 20000 U, UNK
     Route: 030
     Dates: start: 20101126, end: 20101126
  3. OMEPRAZOLE [Concomitant]
     Indication: PRODUCT USED FOR UNKNOWN INDICATION
     Dosage: 20 MG, QD
     Route: 048
  4. ELSPAR [Suspect]
     Dosage: 20000 U, UNK
     Route: 030
     Dates: start: 20101129, end: 20101129
  5. CLOLAR [Suspect]
     Indication: ACUTE LYMPHOCYTIC LEUKAEMIA
     Dosage: 75 MG, QDX5
     Route: 042
     Dates: start: 20101115, end: 20101119
  6. VINCRISTINE [Suspect]
     Indication: ACUTE LYMPHOCYTIC LEUKAEMIA
     Dosage: 2 MG, ONCE
     Route: 042
     Dates: start: 20101124, end: 20101124
  7. ELSPAR [Suspect]
     Dosage: 20000 U, UNK
     Route: 030
     Dates: start: 20101201, end: 20101201
  8. DEXAMETHASONE [Suspect]
     Indication: ACUTE LYMPHOCYTIC LEUKAEMIA
     Dosage: 10 MG, TID
     Route: 048
     Dates: start: 20101124, end: 20101130
  9. LORAZEPAM [Concomitant]
     Dosage: 1.0 MG, Q4HR
     Route: 042
     Dates: start: 20101115, end: 20101204
  10. METOCLOPRAMIDE [Concomitant]
     Indication: PROPHYLAXIS OF NAUSEA AND VOMITING
     Dosage: 10 MG, TID
     Route: 042
     Dates: start: 20101115, end: 20101204
  11. LORAZEPAM [Concomitant]
     Indication: PROPHYLAXIS OF NAUSEA AND VOMITING
     Dosage: 0.5 MG, PRN
     Route: 042
     Dates: start: 20101115, end: 20101204
  12. ALLOPURINOL [Concomitant]
     Indication: PRODUCT USED FOR UNKNOWN INDICATION
     Dosage: 300 MG, QD
     Route: 048
  13. ONDANSETRON [Concomitant]
     Indication: PROPHYLAXIS OF NAUSEA AND VOMITING
     Dosage: 8 MG, TID
     Route: 042
     Dates: start: 20101115, end: 20101204
  14. ETOPOSIDE [Suspect]
     Indication: ACUTE LYMPHOCYTIC LEUKAEMIA
     Dosage: 280 MG, QDX5
     Route: 042
     Dates: start: 20101115, end: 20101119

REACTIONS (8)
  - ALTERED STATE OF CONSCIOUSNESS [None]
  - CONVULSION [None]
  - FEBRILE NEUTROPENIA [None]
  - LEUKAEMIC INFILTRATION BRAIN [None]
  - BK VIRUS INFECTION [None]
  - SENSORY DISTURBANCE [None]
  - BONE MARROW FAILURE [None]
  - THROMBOCYTOPENIA [None]
